FAERS Safety Report 24417839 (Version 1)
Quarter: 2024Q4

REPORT INFORMATION
  Report Type: Spontaneous
  Country: US (occurrence: US)
  Receive Date: 20241009
  Receipt Date: 20241009
  Transmission Date: 20250115
  Serious: No
  Sender: PFIZER
  Company Number: US-PFIZER INC-202400271658

PATIENT
  Age: 8 Month

DRUGS (1)
  1. EUCRISA [Suspect]
     Active Substance: CRISABOROLE
     Indication: Dermatitis atopic
     Route: 061

REACTIONS (2)
  - Drug hypersensitivity [Recovering/Resolving]
  - Application site vesicles [Recovering/Resolving]
